FAERS Safety Report 17588341 (Version 1)
Quarter: 2020Q1

REPORT INFORMATION
  Report Type: Other
  Country: IT (occurrence: IT)
  Receive Date: 20200326
  Receipt Date: 20200326
  Transmission Date: 20200409
  Serious: Yes (Hospitalization)
  Sender: FDA-Public Use
  Company Number: IT-ALSI-202000095

PATIENT
  Age: 43 Year
  Sex: Female

DRUGS (2)
  1. OXYGEN. [Suspect]
     Active Substance: OXYGEN
     Indication: OFF LABEL USE
     Route: 024
  2. OZONE [Suspect]
     Active Substance: OZONE
     Route: 024

REACTIONS (2)
  - Pneumocephalus [Recovered/Resolved]
  - Off label use [Recovered/Resolved]
